FAERS Safety Report 8915896 (Version 2)
Quarter: 2012Q4

REPORT INFORMATION
  Report Type: 
  Country: US (occurrence: US)
  Receive Date: 20121119
  Receipt Date: 20121126
  Transmission Date: 20130627
  Serious: Yes (Death, Hospitalization)
  Sender: FDA-Public Use
  Company Number: US-BAXTER-2012BAX023686

PATIENT
  Sex: Male

DRUGS (1)
  1. DIANEAL LOW CALCIUM [Suspect]
     Indication: CONTINUOUS CYCLING PERITONEAL DIALYSIS

REACTIONS (3)
  - Sepsis [Fatal]
  - Cardiac valve disease [Unknown]
  - Infection [Unknown]
